FAERS Safety Report 23497193 (Version 1)
Quarter: 2024Q1

REPORT INFORMATION
  Report Type: Report from Study
  Country: KR (occurrence: KR)
  Receive Date: 20240208
  Receipt Date: 20240208
  Transmission Date: 20240410
  Serious: Yes (Other)
  Sender: FDA-Public Use
  Company Number: KR-Eisai-EC-2023-131391

PATIENT
  Age: 54 Year
  Sex: Female
  Weight: 66.1 kg

DRUGS (7)
  1. LENVIMA [Suspect]
     Active Substance: LENVATINIB
     Indication: Endometrial cancer
     Route: 048
     Dates: start: 20220325, end: 20220522
  2. LENVIMA [Suspect]
     Active Substance: LENVATINIB
     Route: 048
     Dates: start: 20220523
  3. KEYTRUDA [Suspect]
     Active Substance: PEMBROLIZUMAB
     Indication: Endometrial cancer
     Route: 042
     Dates: start: 20220325, end: 20230302
  4. PITAVASTATIN [Concomitant]
     Active Substance: PITAVASTATIN
     Indication: Hypertension
     Route: 048
     Dates: start: 20220608
  5. NIFEDIPINE [Concomitant]
     Active Substance: NIFEDIPINE
     Indication: Hypertension
     Route: 048
     Dates: start: 20220523
  6. VALSARTAN [Concomitant]
     Active Substance: VALSARTAN
     Indication: Hypertension
     Dates: start: 20220608
  7. VALSARTAN [Concomitant]
     Active Substance: VALSARTAN
     Route: 048
     Dates: start: 20220423, end: 20220523

REACTIONS (2)
  - Acute kidney injury [Recovering/Resolving]
  - Hypothyroidism [Recovering/Resolving]

NARRATIVE: CASE EVENT DATE: 20220901
